FAERS Safety Report 5394011-X (Version None)
Quarter: 2007Q3

REPORT INFORMATION
  Report Type: 
  Country: None (occurrence: None)
  Receive Date: 20070723
  Receipt Date: 20070109
  Transmission Date: 20080115
  Serious: No
  Sender: FDA-Public Use
  Company Number: A0635012A

PATIENT
  Age: 71 Year
  Sex: Male

DRUGS (5)
  1. AVANDIA [Suspect]
     Dosage: 1MG PER DAY
     Route: 048
     Dates: start: 20050101, end: 20061028
  2. BYETTA [Suspect]
     Dosage: 5MCG TWICE PER DAY
     Route: 058
     Dates: start: 20061028, end: 20061121
  3. HUMALOG [Concomitant]
     Dates: start: 20050101
  4. HUMULIN N [Concomitant]
     Dates: start: 20050101
  5. METFORMIN HCL [Concomitant]
     Dates: start: 20060501

REACTIONS (4)
  - DIZZINESS [None]
  - DRUG INTERACTION [None]
  - NAUSEA [None]
  - RETCHING [None]
